FAERS Safety Report 9271458 (Version 1)
Quarter: 2013Q2

REPORT INFORMATION
  Report Type: Spontaneous
  Country: US (occurrence: US)
  Receive Date: 20130506
  Receipt Date: 20130506
  Transmission Date: 20140414
  Serious: No
  Sender: FDA-Public Use
  Company Number: US-PFIZER INC-2013138559

PATIENT
  Age: 48 Year
  Sex: Female

DRUGS (2)
  1. LYRICA [Suspect]
     Indication: FIBROMYALGIA
     Dosage: 150 MG, 2X/DAY
  2. LYRICA [Suspect]
     Dosage: 25 MG, 3X/DAY

REACTIONS (2)
  - Drug intolerance [Unknown]
  - Somnolence [Unknown]
